FAERS Safety Report 9196792 (Version 2)
Quarter: 2013Q2

REPORT INFORMATION
  Report Type: Spontaneous
  Country: JP (occurrence: JP)
  Receive Date: 20130328
  Receipt Date: 20130424
  Transmission Date: 20140414
  Serious: Yes (Hospitalization, Other)
  Sender: FDA-Public Use
  Company Number: JP-MYLANLABS-2013S1006168

PATIENT
  Age: 76 Year
  Sex: Female

DRUGS (5)
  1. CARBOPLATIN [Suspect]
     Indication: LUNG NEOPLASM MALIGNANT
     Dosage: 350 MG/BODY
     Route: 041
     Dates: start: 20130307, end: 20130307
  2. PACLITAXEL [Suspect]
     Indication: LUNG NEOPLASM MALIGNANT
     Route: 041
     Dates: start: 20130307, end: 20130314
  3. ZANTAC [Concomitant]
     Indication: PRODUCT USED FOR UNKNOWN INDICATION
     Route: 041
     Dates: start: 20130314, end: 20130314
  4. GRANISETRON [Concomitant]
     Indication: PRODUCT USED FOR UNKNOWN INDICATION
     Route: 041
     Dates: start: 20130314, end: 20130314
  5. DEXART [Concomitant]
     Indication: PRODUCT USED FOR UNKNOWN INDICATION
     Route: 041
     Dates: start: 20130314, end: 20130314

REACTIONS (1)
  - Altered state of consciousness [Recovered/Resolved]
